FAERS Safety Report 11809141 (Version 2)
Quarter: 2015Q4

REPORT INFORMATION
  Report Type: Spontaneous
  Country: DE (occurrence: DE)
  Receive Date: 20151207
  Receipt Date: 20151207
  Transmission Date: 20160305
  Serious: Yes (Other)
  Sender: FDA-Public Use
  Company Number: ALCN2015DE007370

PATIENT
  Sex: Female

DRUGS (1)
  1. VITALUX PLUS [Suspect]
     Active Substance: VITAMINS
     Indication: AGE-RELATED MACULAR DEGENERATION
     Dosage: UNK
     Route: 048

REACTIONS (4)
  - Vision blurred [Unknown]
  - Cataract [Unknown]
  - Condition aggravated [Unknown]
  - Neovascular age-related macular degeneration [Unknown]
